FAERS Safety Report 26141481 (Version 1)
Quarter: 2025Q4

REPORT INFORMATION
  Report Type: Spontaneous
  Country: US (occurrence: None)
  Receive Date: 20251210
  Receipt Date: 20251210
  Transmission Date: 20260118
  Serious: Yes (Hospitalization)
  Sender: FDA-CTU
  Company Number: None

PATIENT
  Age: 64 Year
  Sex: Male
  Weight: 199 kg

DRUGS (1)
  1. EMPAGLIFLOZIN [Suspect]
     Active Substance: EMPAGLIFLOZIN
     Indication: Diabetes mellitus
     Dosage: FREQUENCY : DAILY;
     Route: 048
     Dates: start: 20250126, end: 20250624

REACTIONS (13)
  - Bacterial sepsis [None]
  - Fungal infection [None]
  - Cellulitis [None]
  - Enterococcus test positive [None]
  - Achromobacter infection [None]
  - Staphylococcus test [None]
  - Antimicrobial susceptibility test resistant [None]
  - Escherichia test positive [None]
  - Bacteroides test positive [None]
  - Corynebacterium infection [None]
  - Postoperative wound infection [None]
  - Stenotrophomonas test positive [None]
  - Fusobacterium test positive [None]

NARRATIVE: CASE EVENT DATE: 20250714
